FAERS Safety Report 16835264 (Version 1)
Quarter: 2019Q3

REPORT INFORMATION
  Report Type: Spontaneous
  Country: US (occurrence: US)
  Receive Date: 20190920
  Receipt Date: 20190920
  Transmission Date: 20191005
  Serious: Yes (Other)
  Sender: FDA-Public Use
  Company Number: US-TEVA-2019-US-1110293

PATIENT
  Sex: Female

DRUGS (8)
  1. MECLIZINE [Concomitant]
     Active Substance: MECLIZINE HYDROCHLORIDE
  2. ALEVE [Concomitant]
     Active Substance: NAPROXEN SODIUM
  3. VESICARE [Concomitant]
     Active Substance: SOLIFENACIN SUCCINATE
  4. METOPROLOL. [Concomitant]
     Active Substance: METOPROLOL
  5. METFORMIN [Concomitant]
     Active Substance: METFORMIN HYDROCHLORIDE
  6. CHLORTHALIDONE. [Concomitant]
     Active Substance: CHLORTHALIDONE
  7. COPAXONE [Suspect]
     Active Substance: GLATIRAMER ACETATE
     Indication: MULTIPLE SCLEROSIS
     Dosage: 40 MG THRICE A WEEK
     Route: 058
     Dates: start: 20180403
  8. LISINOPRIL. [Concomitant]
     Active Substance: LISINOPRIL

REACTIONS (2)
  - Hypoaesthesia [Unknown]
  - Multiple sclerosis [Unknown]
